FAERS Safety Report 17457388 (Version 2)
Quarter: 2020Q1

REPORT INFORMATION
  Report Type: Spontaneous
  Country: TR (occurrence: TR)
  Receive Date: 20200225
  Receipt Date: 20200324
  Transmission Date: 20200409
  Serious: Yes (Death, Life-Threatening, Hospitalization, Other)
  Sender: FDA-Public Use
  Company Number: TR-ABBVIE-20K-161-3290547-00

PATIENT
  Age: 46 Year
  Sex: Male
  Weight: 95 kg

DRUGS (5)
  1. HUMIRA [Suspect]
     Active Substance: ADALIMUMAB
     Indication: UVEITIS
     Route: 058
     Dates: start: 201910, end: 201911
  2. IMURAN [Concomitant]
     Active Substance: AZATHIOPRINE
     Indication: UVEITIS
     Route: 048
  3. COLCHICINE. [Concomitant]
     Active Substance: COLCHICINE
     Indication: PRODUCT USED FOR UNKNOWN INDICATION
  4. HUMIRA [Suspect]
     Active Substance: ADALIMUMAB
     Indication: BEHCET^S SYNDROME
  5. ECOPRIN [Concomitant]
     Indication: PRODUCT USED FOR UNKNOWN INDICATION

REACTIONS (6)
  - Intracranial haematoma [Unknown]
  - Loss of consciousness [Unknown]
  - Viral infection [Unknown]
  - Cardiac arrest [Fatal]
  - Platelet count decreased [Unknown]
  - Cough [Unknown]

NARRATIVE: CASE EVENT DATE: 20200221
